FAERS Safety Report 10050800 (Version 1)
Quarter: 2014Q2

REPORT INFORMATION
  Report Type: Spontaneous
  Country: US (occurrence: US)
  Receive Date: 20140401
  Receipt Date: 20140401
  Transmission Date: 20141212
  Serious: No
  Sender: FDA-Public Use
  Company Number: US-ASTRAZENECA-2014SE00735

PATIENT
  Sex: 0

DRUGS (3)
  1. NEXIUM [Suspect]
     Indication: GASTROOESOPHAGEAL REFLUX DISEASE
     Dosage: TWO TIMES A DAY
     Route: 048
  2. PROTONIX [Concomitant]
     Route: 048
  3. ZANTAC [Concomitant]
     Dosage: BID
     Route: 048

REACTIONS (2)
  - Gastrooesophageal reflux disease [Recovering/Resolving]
  - Off label use [Unknown]
